FAERS Safety Report 4684646-1 (Version None)
Quarter: 2005Q2

REPORT INFORMATION
  Report Type: 
  Country: None (occurrence: None)
  Receive Date: 20050603
  Receipt Date: 20050520
  Transmission Date: 20051028
  Serious: Yes (Death)
  Sender: FDA-Public Use
  Company Number: RS005186-USA

PATIENT
  Age: 95 Year
  Sex: Female

DRUGS (10)
  1. ACIPHEX [Suspect]
     Dosage: 20 MG, ORAL
     Route: 048
  2. SOTALOL HCL [Concomitant]
  3. PLAVIX [Concomitant]
  4. CLONIDINE [Concomitant]
  5. DIOVAN [Concomitant]
  6. LASIX [Concomitant]
  7. NITROGLYCERIN [Concomitant]
  8. LEXAPRO [Concomitant]
  9. FOSINOPRIL SODIUM [Concomitant]
  10. NEURONTIN [Concomitant]

REACTIONS (3)
  - COLON CANCER [None]
  - CORONARY ARTERY ATHEROSCLEROSIS [None]
  - HYPERTENSION [None]
